FAERS Safety Report 17173161 (Version 1)
Quarter: 2019Q4

REPORT INFORMATION
  Report Type: Spontaneous
  Country: DE (occurrence: DE)
  Receive Date: 20191219
  Receipt Date: 20191219
  Transmission Date: 20200122
  Serious: Yes (Other)
  Sender: FDA-Public Use
  Company Number: DE-BAYER-2019-226965

PATIENT
  Age: 79 Year
  Sex: Female

DRUGS (3)
  1. CORTISONE [Concomitant]
     Active Substance: CORTISONE
     Indication: AUTOIMMUNE DISORDER
     Dosage: 70 MG
  2. CIPROBAY (CIPROFLOXACIN) [Suspect]
     Active Substance: CIPROFLOXACIN
     Indication: SEPSIS
     Dosage: UNK
     Route: 048
     Dates: start: 2019, end: 20191210
  3. CIPROBAY (CIPROFLOXACIN) [Suspect]
     Active Substance: CIPROFLOXACIN
     Indication: SEPSIS
     Dosage: UNK
     Route: 042
     Dates: start: 201911

REACTIONS (5)
  - Disorientation [None]
  - Depressed level of consciousness [None]
  - Anxiety [None]
  - Suicidal ideation [None]
  - Behaviour disorder [None]

NARRATIVE: CASE EVENT DATE: 201912
